FAERS Safety Report 8554151-0 (Version None)
Quarter: 2012Q3

REPORT INFORMATION
  Report Type: 
  Country: None (occurrence: None)
  Receive Date: 20120731
  Receipt Date: 20120730
  Transmission Date: 20120928
  Serious: Yes (Death, Other)
  Sender: FDA-Public Use
  Company Number: PHHY2012FR057208

PATIENT
  Sex: Male

DRUGS (7)
  1. MODOPAR [Concomitant]
     Dosage: 125 MG, BID
  2. ACETAMINOPHEN [Concomitant]
     Indication: PAIN
     Dosage: 6 DF, PRN
     Dates: start: 20120426
  3. CLOZAPINE [Interacting]
     Indication: DEMENTIA WITH LEWY BODIES
     Dosage: 0.5 DF, DAILY
     Route: 048
     Dates: start: 20120427
  4. OXAZEPAM [Interacting]
     Indication: SLEEP DISORDER
     Dosage: 45 MG, QD
     Route: 048
     Dates: start: 20120417, end: 20120427
  5. EXELON [Interacting]
     Indication: DEMENTIA WITH LEWY BODIES
     Dosage: 4.6 MG/24H
     Route: 062
     Dates: start: 20120427
  6. MOTILIUM [Suspect]
     Indication: DEMENTIA WITH LEWY BODIES
     Dosage: 3 DF DAILY
     Route: 048
     Dates: start: 20120427
  7. OXAZEPAM [Interacting]
     Dosage: 25 MG

REACTIONS (3)
  - ARRHYTHMIA [None]
  - DEATH [None]
  - DRUG INTERACTION [None]
